FAERS Safety Report 9375227 (Version 1)
Quarter: 2013Q2

REPORT INFORMATION
  Report Type: Spontaneous
  Country: GB (occurrence: GB)
  Receive Date: 20130628
  Receipt Date: 20130628
  Transmission Date: 20140414
  Serious: Yes (Death)
  Sender: FDA-Public Use
  Company Number: GB-TEVA-414401ISR

PATIENT
  Age: 46 Year
  Sex: Male
  Weight: 111.9 kg

DRUGS (5)
  1. SERTRALINE [Suspect]
     Indication: DEPRESSION
     Route: 048
     Dates: start: 2000
  2. ZAPONEX [Suspect]
     Indication: SCHIZOPHRENIA, PARANOID TYPE
     Dosage: 600 MILLIGRAM DAILY;
     Route: 048
     Dates: start: 20090626, end: 20121116
  3. VALPROATE SODIUM [Concomitant]
     Indication: CONVULSION
     Route: 048
     Dates: start: 2000
  4. AMISULPRIDE [Concomitant]
     Route: 048
     Dates: start: 2005
  5. SIMVASTATIN [Concomitant]
     Indication: HYPERCHOLESTEROLAEMIA
     Route: 048
     Dates: start: 2005

REACTIONS (5)
  - Drowning [Fatal]
  - Completed suicide [Fatal]
  - Arteriosclerosis coronary artery [Not Recovered/Not Resolved]
  - Emphysema [Not Recovered/Not Resolved]
  - Intentional overdose [Unknown]
